FAERS Safety Report 24831684 (Version 1)
Quarter: 2025Q1

REPORT INFORMATION
  Report Type: Spontaneous
  Country: US (occurrence: US)
  Receive Date: 20250110
  Receipt Date: 20250110
  Transmission Date: 20250409
  Serious: No
  Sender: NANJING KING-FRIEND BIOCHEMICAL PHARMACEUTICAL
  Company Number: US-NKFPHARMA-2024MPSPO00381

PATIENT
  Sex: Female

DRUGS (1)
  1. YUSIMRY [Suspect]
     Active Substance: ADALIMUMAB-AQVH
     Indication: Product used for unknown indication
     Route: 065

REACTIONS (2)
  - Liquid product physical issue [Unknown]
  - No adverse event [Unknown]
